FAERS Safety Report 12693619 (Version 1)
Quarter: 2016Q3

REPORT INFORMATION
  Report Type: Spontaneous
  Country: US (occurrence: US)
  Receive Date: 20160829
  Receipt Date: 20160829
  Transmission Date: 20161109
  Serious: No
  Sender: FDA-Public Use
  Company Number: US-TEVA-682501ACC

PATIENT
  Age: 45 Year
  Sex: Female
  Weight: 56.75 kg

DRUGS (2)
  1. PLAN B ONE-STEP [Suspect]
     Active Substance: LEVONORGESTREL
     Indication: POST COITAL CONTRACEPTION
     Dates: start: 20160623, end: 20160623
  2. EXCEDRIN [Concomitant]
     Active Substance: ACETAMINOPHEN\ASPIRIN\CAFFEINE
     Indication: MIGRAINE

REACTIONS (4)
  - Vaginal haemorrhage [Recovered/Resolved]
  - Dysmenorrhoea [Unknown]
  - Migraine [Recovered/Resolved]
  - Breast tenderness [Unknown]

NARRATIVE: CASE EVENT DATE: 20160623
